FAERS Safety Report 7493613-4 (Version None)
Quarter: 2011Q2

REPORT INFORMATION
  Report Type: 
  Country: None (occurrence: None)
  Receive Date: 20110520
  Receipt Date: 20110517
  Transmission Date: 20111010
  Serious: Yes (Hospitalization, Other)
  Sender: FDA-Public Use
  Company Number: PHFR2011GB03145

PATIENT
  Age: 88 Year
  Sex: Male

DRUGS (1)
  1. TRILEPTAL [Suspect]
     Dosage: 750 MG, BID

REACTIONS (5)
  - CONFUSIONAL STATE [None]
  - LOWER RESPIRATORY TRACT INFECTION [None]
  - CREATININE RENAL CLEARANCE DECREASED [None]
  - RENAL DISORDER [None]
  - GLOMERULAR FILTRATION RATE DECREASED [None]
